FAERS Safety Report 5244354-5 (Version None)
Quarter: 2007Q1

REPORT INFORMATION
  Report Type: 
  Country: None (occurrence: None)
  Receive Date: 20070222
  Receipt Date: 20070216
  Transmission Date: 20070707
  Serious: Yes (Other)
  Sender: FDA-Public Use
  Company Number: US-BRISTOL-MYERS SQUIBB COMPANY-13682265

PATIENT
  Age: 72 Year
  Sex: Female

DRUGS (1)
  1. DEFINITY [Suspect]
     Indication: STRESS ECHOCARDIOGRAM
     Dosage: DILUTED DEFINITY

REACTIONS (4)
  - DYSPNOEA [None]
  - EYE ROLLING [None]
  - FLUSHING [None]
  - LOSS OF CONSCIOUSNESS [None]
